FAERS Safety Report 5267980-6 (Version None)
Quarter: 2007Q1

REPORT INFORMATION
  Report Type: 
  Country: None (occurrence: None)
  Receive Date: 20061214
  Receipt Date: 20050914
  Transmission Date: 20070707
  Serious: Yes (Other)
  Sender: FDA-Public Use
  Company Number: 2005131147

PATIENT
  Sex: Female

DRUGS (1)
  1. XANAX [Suspect]
     Indication: ILL-DEFINED DISORDER

REACTIONS (3)
  - DRUG DEPENDENCE [None]
  - DRUG INTOLERANCE [None]
  - FEELING ABNORMAL [None]
